FAERS Safety Report 7930508-3 (Version None)
Quarter: 2011Q4

REPORT INFORMATION
  Report Type: 
  Country: None (occurrence: None)
  Receive Date: 20111121
  Receipt Date: 20111107
  Transmission Date: 20120403
  Serious: Yes (Hospitalization)
  Sender: FDA-Public Use
  Company Number: US-ROCHE-1012231

PATIENT
  Sex: Female

DRUGS (7)
  1. HERCEPTIN [Suspect]
  2. HERCEPTIN [Suspect]
  3. DEXAMETHASONE [Suspect]
     Indication: PRODUCT USED FOR UNKNOWN INDICATION
  4. IXABEPILONE [Suspect]
     Indication: BREAST CANCER
     Route: 042
  5. HERCEPTIN [Suspect]
     Indication: BREAST CANCER
     Route: 042
     Dates: start: 20041109
  6. CARBOPLATIN [Suspect]
     Indication: BREAST CANCER
     Dosage: 2 AUC
     Route: 042
  7. DIPHENHYDRAMINE HCL [Suspect]
     Indication: PRODUCT USED FOR UNKNOWN INDICATION

REACTIONS (7)
  - INSOMNIA [None]
  - STRESS [None]
  - MENTAL STATUS CHANGES [None]
  - ANXIETY [None]
  - DELUSION [None]
  - PYREXIA [None]
  - AGITATION [None]
